FAERS Safety Report 12198011 (Version 1)
Quarter: 2016Q1

REPORT INFORMATION
  Report Type: Spontaneous
  Country: US (occurrence: None)
  Receive Date: 20160321
  Receipt Date: 20160321
  Transmission Date: 20160526
  Serious: Yes (Other)
  Sender: FDA-Public Use
  Company Number: None

PATIENT
  Age: 28 Year
  Sex: Female
  Weight: 97.52 kg

DRUGS (1)
  1. LUPRON DEPOT [Suspect]
     Active Substance: LEUPROLIDE ACETATE
     Indication: ENDOMETRIOSIS
     Dosage: SHOT 1X A MONTH INTO THE MUSCLE
     Route: 030

REACTIONS (13)
  - Restless legs syndrome [None]
  - Deafness [None]
  - Vertigo [None]
  - Hypersomnia [None]
  - Headache [None]
  - Asthenia [None]
  - Fatigue [None]
  - Pain in extremity [None]
  - Depression [None]
  - Vomiting [None]
  - Influenza like illness [None]
  - Balance disorder [None]
  - Pain [None]

NARRATIVE: CASE EVENT DATE: 20160318
